FAERS Safety Report 8340992-1 (Version None)
Quarter: 2012Q2

REPORT INFORMATION
  Report Type: 
  Country: None (occurrence: None)
  Receive Date: 20120507
  Receipt Date: 20071019
  Transmission Date: 20120825
  Serious: Yes (Hospitalization, Other)
  Sender: FDA-Public Use
  Company Number: DE-ROCHE-GNE249950

PATIENT

DRUGS (5)
  1. ADRIAMYCIN PFS [Concomitant]
     Indication: NON-HODGKIN'S LYMPHOMA
  2. MABTHERA [Suspect]
     Indication: NON-HODGKIN'S LYMPHOMA
  3. CYCLOPHOSPHAMIDE [Concomitant]
     Indication: NON-HODGKIN'S LYMPHOMA
  4. VINCRISTINE [Concomitant]
     Indication: NON-HODGKIN'S LYMPHOMA
  5. PREDNISONE [Concomitant]
     Indication: NON-HODGKIN'S LYMPHOMA

REACTIONS (3)
  - STAPHYLOCOCCAL INFECTION [None]
  - BONE MARROW FAILURE [None]
  - PYREXIA [None]
